FAERS Safety Report 6277878-2 (Version None)
Quarter: 2009Q3

REPORT INFORMATION
  Report Type: 
  Country: None (occurrence: None)
  Receive Date: 20090722
  Receipt Date: 20090714
  Transmission Date: 20100115
  Serious: Yes (Death)
  Sender: FDA-Public Use
  Company Number: US-GILEAD-2009-0023099

PATIENT
  Sex: Female

DRUGS (17)
  1. LETAIRIS [Suspect]
     Indication: PULMONARY ARTERIAL HYPERTENSION
     Route: 048
     Dates: start: 20090224
  2. COZAAR [Concomitant]
  3. ALBUTEROL [Concomitant]
  4. PREDNISONE TAB [Concomitant]
  5. SPIRIVA [Concomitant]
  6. SYMBICORT [Concomitant]
  7. AZATHIOPRINE [Concomitant]
  8. HYDROXYCHLOROQUINE SULFATE [Concomitant]
  9. DAPSONE [Concomitant]
  10. TRAZODONE [Concomitant]
  11. VALIUM [Concomitant]
  12. DEPAKOTE [Concomitant]
  13. GEODON [Concomitant]
  14. OXYCONTIN [Concomitant]
  15. PERCOCET [Concomitant]
  16. PRILOSEC [Concomitant]
  17. FOLIC ACID [Concomitant]

REACTIONS (1)
  - CARDIAC FAILURE CONGESTIVE [None]
